FAERS Safety Report 25285871 (Version 1)
Quarter: 2025Q2

REPORT INFORMATION
  Report Type: Spontaneous
  Country: US (occurrence: US)
  Receive Date: 20250509
  Receipt Date: 20250509
  Transmission Date: 20250717
  Serious: Yes (Other)
  Sender: JIANGSU HENGRUI
  Company Number: US-JIANGSU HENGRUI PHARMACEUTICALS CO., LTD.-H2025001202859

PATIENT
  Age: 69 Year

DRUGS (3)
  1. PACLITAXEL PROTEIN-BOUND PARTICLES FOR INJECTABLE SUSPENSION (ALBUMIN- [Suspect]
     Active Substance: PACLITAXEL
     Indication: Ductal adenocarcinoma of pancreas
  2. GEMCITABINE [Suspect]
     Active Substance: GEMCITABINE
     Indication: Ductal adenocarcinoma of pancreas
  3. IVOSPEMIN [Suspect]
     Active Substance: IVOSPEMIN
     Indication: Ductal adenocarcinoma of pancreas

REACTIONS (2)
  - Retinal toxicity [Not Recovered/Not Resolved]
  - Product use in unapproved indication [Unknown]
